FAERS Safety Report 5219043-3 (Version None)
Quarter: 2007Q1

REPORT INFORMATION
  Report Type: 
  Country: None (occurrence: None)
  Receive Date: 20070124
  Receipt Date: 20070124
  Transmission Date: 20070707
  Serious: Yes (Other)
  Sender: FDA-Public Use
  Company Number: None

PATIENT
  Age: 74 Year
  Sex: Female

DRUGS (9)
  1. REVLIMID [Suspect]
     Indication: MULTIPLE MYELOMA
     Dosage: 10MG DAILY 21D/28D PO
     Route: 048
  2. METOCLOPRAMIDE [Concomitant]
  3. GABAPENTIN [Concomitant]
  4. HYDROCHLOROTHIAZIDE [Concomitant]
  5. MORPHINE SULFATE [Concomitant]
  6. NASAREL [Concomitant]
  7. PREDNISONE [Concomitant]
  8. PROMETHAZINE [Concomitant]
  9. ALPRAZOLAM [Concomitant]

REACTIONS (2)
  - DRY SKIN [None]
  - SKIN EXFOLIATION [None]
